FAERS Safety Report 8570733-4 (Version None)
Quarter: 2012Q3

REPORT INFORMATION
  Report Type: 
  Country: None (occurrence: None)
  Receive Date: 20120805
  Receipt Date: 20120725
  Transmission Date: 20120928
  Serious: No
  Sender: FDA-Public Use
  Company Number: US-ASTRAZENECA-2012SE53213

PATIENT
  Age: 87 Year
  Sex: Female

DRUGS (3)
  1. NEXIUM [Suspect]
     Route: 048
  2. BABY ASPRIRN [Concomitant]
  3. MULTHU [Concomitant]

REACTIONS (2)
  - DYSPNOEA [None]
  - GAIT DISTURBANCE [None]
